FAERS Safety Report 19261479 (Version 2)
Quarter: 2021Q2

REPORT INFORMATION
  Report Type: Spontaneous
  Country: US (occurrence: US)
  Receive Date: 20210515
  Receipt Date: 20210521
  Transmission Date: 20210717
  Serious: Yes (Life-Threatening, Hospitalization, Other)
  Sender: FDA-Public Use
  Company Number: US-LUPIN PHARMACEUTICALS INC.-2021-06894

PATIENT
  Age: 70 Year
  Sex: Male

DRUGS (4)
  1. METOPROLOL TARTRATE. [Concomitant]
     Active Substance: METOPROLOL TARTRATE
     Indication: PRODUCT USED FOR UNKNOWN INDICATION
     Dosage: 25 MILLIGRAM, BID
     Route: 065
  2. ASPIRIN. [Concomitant]
     Active Substance: ASPIRIN
     Indication: PRODUCT USED FOR UNKNOWN INDICATION
     Dosage: 81 MILLIGRAM, QD
     Route: 065
  3. ATORVASTATIN CALCIUM. [Suspect]
     Active Substance: ATORVASTATIN CALCIUM
     Indication: PRODUCT USED FOR UNKNOWN INDICATION
     Dosage: 80 MILLIGRAM, QD
     Route: 065
  4. GLIPIZIDE. [Concomitant]
     Active Substance: GLIPIZIDE
     Indication: PRODUCT USED FOR UNKNOWN INDICATION
     Dosage: 5 MILLIGRAM, QD
     Route: 065

REACTIONS (9)
  - Autoimmune myocarditis [Recovered/Resolved]
  - Transaminases increased [Recovered/Resolved]
  - Loss of personal independence in daily activities [Recovered/Resolved]
  - Acute kidney injury [Recovered/Resolved]
  - Necrotising myositis [Recovered/Resolved]
  - Cardiac failure acute [Recovering/Resolving]
  - Left ventricular end-diastolic pressure increased [Recovering/Resolving]
  - Rhabdomyolysis [Recovered/Resolved]
  - Autoimmune myositis [Recovered/Resolved]
